FAERS Safety Report 15639906 (Version 1)
Quarter: 2018Q4

REPORT INFORMATION
  Report Type: Spontaneous
  Country: DE (occurrence: DE)
  Receive Date: 20181120
  Receipt Date: 20181120
  Transmission Date: 20190205
  Serious: Yes (Other)
  Sender: FDA-Public Use
  Company Number: PHHY2018DE159013

PATIENT
  Age: 52 Year
  Sex: Female
  Weight: 66 kg

DRUGS (3)
  1. ESTRAMON [ESTRADIOL] [Suspect]
     Active Substance: ESTRADIOL
     Indication: PRODUCT USED FOR UNKNOWN INDICATION
     Dosage: UNK
     Route: 062
     Dates: start: 20180924, end: 20181103
  2. URO-TABLINEN [Concomitant]
     Dosage: 50 MG, Q8H
     Route: 065
     Dates: start: 20181004, end: 20181010
  3. URO-TABLINEN [Concomitant]
     Indication: URINARY TRACT INFECTION
     Dosage: 50 UG, QW
     Route: 062
     Dates: start: 20180924, end: 20181103

REACTIONS (7)
  - Nervousness [Unknown]
  - Palpitations [Recovered/Resolved]
  - Restlessness [Unknown]
  - Heart rate increased [Recovered/Resolved]
  - Atrial fibrillation [Recovered/Resolved]
  - Arrhythmia [Recovered/Resolved]
  - Sleep disorder [Unknown]

NARRATIVE: CASE EVENT DATE: 20181010
